FAERS Safety Report 5825177-2 (Version None)
Quarter: 2008Q3

REPORT INFORMATION
  Report Type: 
  Country: None (occurrence: None)
  Receive Date: 20080729
  Receipt Date: 20080716
  Transmission Date: 20090109
  Serious: Yes (Hospitalization, Other)
  Sender: FDA-Public Use
  Company Number: PHHY2008GB15357

PATIENT
  Sex: Male

DRUGS (3)
  1. CLOZARIL [Suspect]
     Indication: SCHIZOPHRENIA
     Dosage: UNK
     Dates: start: 20061227, end: 20080615
  2. CLOZARIL [Suspect]
     Dosage: 200 MG MANE
     Dates: start: 20080617
  3. CLOZARIL [Suspect]
     Dosage: 300 MG DAILY

REACTIONS (4)
  - ALCOHOL USE [None]
  - ALCOHOLISM [None]
  - SCHIZOPHRENIA [None]
  - TREATMENT NONCOMPLIANCE [None]
